FAERS Safety Report 8090399-X (Version None)
Quarter: 2012Q1

REPORT INFORMATION
  Report Type: 
  Country: None (occurrence: None)
  Receive Date: 20120129
  Receipt Date: 20111129
  Transmission Date: 20120608
  Serious: No
  Sender: FDA-Public Use
  Company Number: US-ABBOTT-11P-163-0879865-00

PATIENT
  Sex: Female
  Weight: 61.29 kg

DRUGS (2)
  1. HUMIRA [Suspect]
     Indication: CROHN'S DISEASE
     Route: 058
     Dates: start: 20081101, end: 20111104
  2. PENTASA [Concomitant]
     Indication: CROHN'S DISEASE

REACTIONS (3)
  - NAUSEA [None]
  - VOMITING [None]
  - DYSPEPSIA [None]
